FAERS Safety Report 7068761-3 (Version None)
Quarter: 2010Q4

REPORT INFORMATION
  Report Type: 
  Country: None (occurrence: None)
  Receive Date: 20101028
  Receipt Date: 20101019
  Transmission Date: 20110411
  Serious: Yes (Other)
  Sender: FDA-Public Use
  Company Number: BR-PFIZER INC-2010132946

PATIENT
  Sex: Male
  Weight: 95 kg

DRUGS (4)
  1. FRONTAL XR [Suspect]
     Indication: BIPOLAR DISORDER
     Dosage: 2 MG, 1X/DAY
     Route: 048
     Dates: start: 20100101
  2. DEPAKOTE [Concomitant]
     Dosage: UNK
  3. TRAZODONE HYDROCHLORIDE [Concomitant]
     Dosage: UNK
  4. ZOLPIDEM [Concomitant]
     Dosage: UNK

REACTIONS (3)
  - BIPOLAR DISORDER [None]
  - INSOMNIA [None]
  - WEIGHT FLUCTUATION [None]
